FAERS Safety Report 20740201 (Version 2)
Quarter: 2023Q1

REPORT INFORMATION
  Report Type: Spontaneous
  Country: US (occurrence: US)
  Receive Date: 20220422
  Receipt Date: 20230302
  Transmission Date: 20230418
  Serious: No
  Sender: FDA-Public Use
  Company Number: US-PFIZER INC-202200145004

PATIENT
  Age: 64 Year
  Sex: Female

DRUGS (2)
  1. IBRANCE [Suspect]
     Active Substance: PALBOCICLIB
     Indication: Breast cancer female
     Dosage: 100 MG
     Dates: start: 20211102
  2. IBRANCE [Suspect]
     Active Substance: PALBOCICLIB
     Dosage: 100 MG
     Dates: start: 20230202

REACTIONS (4)
  - Alopecia [Unknown]
  - Decreased appetite [Unknown]
  - Fatigue [Unknown]
  - Dyspnoea [Unknown]
